FAERS Safety Report 8719918 (Version 2)
Quarter: 2012Q4

REPORT INFORMATION
  Report Type: 
  Country: FR (occurrence: FR)
  Receive Date: 20120813
  Receipt Date: 20120831
  Transmission Date: 20130627
  Serious: Yes (Death)
  Sender: FDA-Public Use
  Company Number: FR-SANOFI-AVENTIS-2012SA055602

PATIENT
  Age: 66 Year
  Sex: Male

DRUGS (18)
  1. PLITICAN [Suspect]
     Indication: PREVENTION
     Route: 042
     Dates: start: 20120314, end: 20120319
  2. STILNOX [Suspect]
     Indication: INSOMNIA
     Route: 048
     Dates: end: 20120318
  3. SPECIAFOLDINE [Suspect]
     Indication: VITAMIN B12 DEFICIENCY
     Route: 048
     Dates: end: 20120405
  4. TRANXENE [Suspect]
     Indication: ANXIETY REACTION
     Route: 048
     Dates: start: 20120313, end: 20120316
  5. SANDIMMUN [Suspect]
     Indication: PREVENTION
     Route: 042
     Dates: start: 20120123, end: 20120404
  6. VFEND [Suspect]
     Indication: PREVENTION
     Dosage: powder for solution for perfusion
     Route: 042
     Dates: end: 20120511
  7. HEPARIN [Suspect]
     Indication: PREVENTION
     Route: 042
     Dates: end: 20120321
  8. ALBUMIN [Suspect]
     Indication: DRUG USE FOR UNKNOWN INDICATION
     Dosage: form: Solution
     Route: 042
     Dates: end: 20120306
  9. SOLUMEDROL(METHYLPREDNISOLONE SODIUM SUCCINATE) INFUSION [Suspect]
     Indication: IMMUNOSUPPRESSION
     Route: 042
     Dates: end: 20120511
  10. LEVOTHYROX [Suspect]
     Indication: HYPOTHYROIDISM
     Route: 048
     Dates: end: 20120511
  11. DELURSAN [Suspect]
     Indication: CHOLESTASIS
     Route: 048
     Dates: end: 20120511
  12. LOXEN [Suspect]
     Indication: HYPERTENSION
     Route: 048
     Dates: end: 20120415
  13. MOPRAL [Suspect]
     Indication: PREVENTION
     Route: 048
     Dates: end: 20120511
  14. ORACILLINE [Suspect]
     Indication: PREVENTION
     Dosage: 2 Millions IU daily
     Route: 042
     Dates: end: 20120322
  15. BACTRIM FORTE [Suspect]
     Indication: PREVENTION
     Route: 048
     Dates: end: 20120322
  16. TIORFAN [Suspect]
     Indication: PROPHYLAXIS AGAINST DIARRHEA
     Route: 048
     Dates: end: 20120425
  17. VALGANCICLOVIR [Suspect]
     Indication: PREVENTION
     Route: 048
     Dates: start: 20120310, end: 20120316
  18. EFFEXOR [Suspect]
     Indication: DRUG USE FOR UNKNOWN INDICATION
     Route: 048
     Dates: start: 20120313, end: 20120322

REACTIONS (3)
  - Thrombotic microangiopathy [Fatal]
  - Haemolysis [None]
  - Renal impairment [None]
